FAERS Safety Report 13268746 (Version 1)
Quarter: 2017Q1

REPORT INFORMATION
  Report Type: Report from Study
  Country: IN (occurrence: IN)
  Receive Date: 20170224
  Receipt Date: 20170224
  Transmission Date: 20170428
  Serious: Yes (Other)
  Sender: FDA-Public Use
  Company Number: IN-ASTELLAS-2017US006609

PATIENT
  Age: 68 Year
  Sex: Male

DRUGS (4)
  1. DOM DT [Suspect]
     Active Substance: DOMPERIDONE
     Indication: DYSPEPSIA
     Route: 048
     Dates: start: 20160801, end: 201611
  2. DOM DT [Suspect]
     Active Substance: DOMPERIDONE
     Indication: VOMITING
  3. AUTRIN /00622901/ [Suspect]
     Active Substance: ASCORBIC ACID\CYANOCOBALAMIN\FERROUS FUMARATE\FOLIC ACID\INTRINSIC FACTOR
     Indication: ANAEMIA
     Dosage: UNK UNK, ONCE DAILY
     Route: 048
     Dates: start: 20160801, end: 201611
  4. ENZALUTAMIDE [Suspect]
     Active Substance: ENZALUTAMIDE
     Indication: HORMONE-REFRACTORY PROSTATE CANCER
     Dosage: 160 MG (4 X 40 MG), ONCE DAILY
     Route: 048
     Dates: start: 20160801, end: 201611

REACTIONS (4)
  - Metastases to lymph nodes [Unknown]
  - Metastases to bone [Unknown]
  - Peripheral swelling [Unknown]
  - Metastases to liver [Unknown]

NARRATIVE: CASE EVENT DATE: 2016
